FAERS Safety Report 14171777 (Version 1)
Quarter: 2017Q4

REPORT INFORMATION
  Report Type: Spontaneous
  Country: US (occurrence: US)
  Receive Date: 20171108
  Receipt Date: 20171108
  Transmission Date: 20180321
  Serious: Yes (Death)
  Sender: FDA-Public Use
  Company Number: US-HAEMONETICS CORP-2033573

PATIENT
  Age: 47 Year
  Sex: Female
  Weight: 77.73 kg

DRUGS (1)
  1. HAEMONETICS ANTICOAGULANT SODIUM CITRATE [Suspect]
     Active Substance: TRISODIUM CITRATE DIHYDRATE
     Indication: APHERESIS
     Route: 042
     Dates: start: 20171020, end: 20171020

REACTIONS (1)
  - Death [Fatal]

NARRATIVE: CASE EVENT DATE: 20171020
